FAERS Safety Report 5869755-3 (Version None)
Quarter: 2008Q3

REPORT INFORMATION
  Report Type: 
  Country: None (occurrence: None)
  Receive Date: 20080904
  Receipt Date: 20080820
  Transmission Date: 20090109
  Serious: Yes (Other)
  Sender: FDA-Public Use
  Company Number: GB-ELI_LILLY_AND_COMPANY-GB200806005752

PATIENT
  Sex: Female
  Weight: 60 kg

DRUGS (3)
  1. FORTEO [Suspect]
     Indication: OSTEOPOROSIS
     Dosage: 20 UG, DAILY (1/D)
     Route: 058
     Dates: start: 20070717
  2. CANDESARTAN [Concomitant]
     Dosage: UNK, UNKNOWN
     Route: 048
  3. THYROXINE [Concomitant]
     Dosage: 150 UG, UNKNOWN
     Route: 048

REACTIONS (4)
  - BALANCE DISORDER [None]
  - DEAFNESS UNILATERAL [None]
  - DIZZINESS [None]
  - EAR DISCOMFORT [None]
